FAERS Safety Report 6815512-0 (Version None)
Quarter: 2010Q3

REPORT INFORMATION
  Report Type: 
  Country: None (occurrence: None)
  Receive Date: 20100702
  Receipt Date: 20100701
  Transmission Date: 20110219
  Serious: Yes (Hospitalization)
  Sender: FDA-Public Use
  Company Number: CHPA2010US10889

PATIENT
  Age: 81 Year
  Sex: Male
  Weight: 77.098 kg

DRUGS (1)
  1. GAS-X EXTRA STRENGTH SOFTGELS (NCH) [Suspect]
     Indication: FLATULENCE
     Dosage: 125 MG, TID
     Route: 048
     Dates: start: 20100101

REACTIONS (2)
  - ABDOMINAL PAIN UPPER [None]
  - CARDIAC PACEMAKER INSERTION [None]
